FAERS Safety Report 4976958-9 (Version None)
Quarter: 2006Q2

REPORT INFORMATION
  Report Type: 
  Country: None (occurrence: None)
  Receive Date: 20060413
  Receipt Date: 20060329
  Transmission Date: 20061013
  Serious: Yes (Death, Hospitalization)
  Sender: FDA-Public Use
  Company Number: THYR-10299

PATIENT
  Age: 81 Year
  Sex: Male

DRUGS (1)
  1. THYROGEN [Suspect]
     Indication: METASTASIS
     Dosage: 0.6 ML
     Dates: start: 20060116, end: 20060117

REACTIONS (3)
  - CARDIO-RESPIRATORY ARREST [None]
  - CONFUSIONAL STATE [None]
  - RESTLESSNESS [None]
